FAERS Safety Report 12636309 (Version 2)
Quarter: 2016Q3

REPORT INFORMATION
  Report Type: Spontaneous
  Country: US (occurrence: US)
  Receive Date: 20160809
  Receipt Date: 20160930
  Transmission Date: 20161109
  Serious: No
  Sender: FDA-Public Use
  Company Number: US-009507513-1608USA003012

PATIENT

DRUGS (1)
  1. BRIDION [Suspect]
     Active Substance: SUGAMMADEX
     Dosage: UNK

REACTIONS (1)
  - Trismus [Unknown]
